FAERS Safety Report 19222737 (Version 1)
Quarter: 2021Q2

REPORT INFORMATION
  Report Type: Spontaneous
  Country: US (occurrence: US)
  Receive Date: 20210506
  Receipt Date: 20210506
  Transmission Date: 20210717
  Serious: No
  Sender: FDA-Public Use
  Company Number: US-TAKEDA-2021TUS027459

PATIENT
  Age: 76 Year
  Sex: Male
  Weight: 69 kg

DRUGS (1)
  1. PENTASA [Suspect]
     Active Substance: MESALAMINE
     Indication: CROHN^S DISEASE
     Dosage: 500 MILLIGRAM (4 TABLET), BID
     Route: 065

REACTIONS (2)
  - No adverse event [Unknown]
  - Product storage error [Unknown]

NARRATIVE: CASE EVENT DATE: 20210123
